FAERS Safety Report 17885397 (Version 1)
Quarter: 2020Q2

REPORT INFORMATION
  Report Type: Report from Study
  Country: AU (occurrence: AU)
  Receive Date: 20200611
  Receipt Date: 20200611
  Transmission Date: 20200714
  Serious: Yes (Other)
  Sender: FDA-Public Use
  Company Number: AU-JNJFOC-20200611474

PATIENT

DRUGS (1)
  1. DARATUMUMAB [Suspect]
     Active Substance: DARATUMUMAB
     Indication: PLASMA CELL MYELOMA
     Dosage: THE KNOWN ALLOANTIBODY (ANTI-C) WERE SPIKED WITH DARATUMUMAB (FINAL CONCENTRATION 10 UG/ML)
     Route: 065

REACTIONS (1)
  - Immune agglutinins [Unknown]
